FAERS Safety Report 23650402 (Version 2)
Quarter: 2024Q1

REPORT INFORMATION
  Report Type: Spontaneous
  Country: US (occurrence: US)
  Receive Date: 20240320
  Receipt Date: 20240328
  Transmission Date: 20240410
  Serious: No
  Sender: FDA-Public Use
  Company Number: US-ABBVIE-5681426

PATIENT
  Sex: Male

DRUGS (1)
  1. VENCLEXTA [Suspect]
     Active Substance: VENETOCLAX
     Indication: Immune thrombocytopenia
     Dosage: TAKE 4 TABLETS BY MOUTH DAILY TOTAL DOSE OF 400 MG?FORM STRENGTH: 100 MG
     Route: 048

REACTIONS (1)
  - Off label use [Unknown]
